FAERS Safety Report 5428111-2 (Version None)
Quarter: 2007Q3

REPORT INFORMATION
  Report Type: 
  Country: None (occurrence: None)
  Receive Date: 20070828
  Receipt Date: 20070827
  Transmission Date: 20080115
  Serious: No
  Sender: FDA-Public Use
  Company Number: US-BOEHRINGER INGELHEIM PHARMACEUTICALS, INC.-2006-BP-05375BP

PATIENT
  Age: 65 Year
  Sex: Male

DRUGS (8)
  1. FLOMAX [Suspect]
     Indication: BENIGN PROSTATIC HYPERPLASIA
     Route: 048
     Dates: start: 20030901, end: 20050101
  2. FLOMAX [Suspect]
     Indication: BLADDER DISORDER
     Route: 048
     Dates: start: 20050101
  3. SAW PALMETO [Concomitant]
     Indication: BENIGN PROSTATIC HYPERPLASIA
  4. NADOLOL [Concomitant]
     Indication: HYPERTENSION
  5. LEVOTHYROXINE SODIUM [Concomitant]
     Indication: HYPOTHYROIDISM
  6. PEPCID AC [Concomitant]
     Indication: GASTROOESOPHAGEAL REFLUX DISEASE
  7. VIAGRA [Concomitant]
  8. AMINO ACIDS [Concomitant]
     Indication: VASODILATION PROCEDURE

REACTIONS (11)
  - BLOOD PRESSURE DECREASED [None]
  - COLD SWEAT [None]
  - DIZZINESS [None]
  - DRY MOUTH [None]
  - EJACULATION DISORDER [None]
  - FEELING COLD [None]
  - HEART RATE DECREASED [None]
  - MUSCLE SPASMS [None]
  - MUSCLE TWITCHING [None]
  - PERIPHERAL COLDNESS [None]
  - URINARY INCONTINENCE [None]
